FAERS Safety Report 17240742 (Version 6)
Quarter: 2020Q4

REPORT INFORMATION
  Report Type: Report from Study
  Country: CA (occurrence: CA)
  Receive Date: 20200107
  Receipt Date: 20201208
  Transmission Date: 20210113
  Serious: Yes (Hospitalization, Other)
  Sender: FDA-Public Use
  Company Number: CA-BRISTOL-MYERS SQUIBB COMPANY-BMS-2017-026564

PATIENT
  Age: 69 Year
  Sex: Female

DRUGS (6)
  1. SULFA [SULFANILAMIDE] [Concomitant]
     Active Substance: SULFANILAMIDE
     Indication: PRODUCT USED FOR UNKNOWN INDICATION
     Route: 065
  2. ABATACEPT [Suspect]
     Active Substance: ABATACEPT
     Indication: RHEUMATOID ARTHRITIS
     Dosage: 1000 MILLIGRAM, Q4WK
     Route: 042
     Dates: start: 20150326
  3. ABATACEPT [Suspect]
     Active Substance: ABATACEPT
     Dosage: 750 MILLIGRAM, Q4WK
     Route: 042
     Dates: start: 20150326
  4. CIPRO [Concomitant]
     Active Substance: CIPROFLOXACIN HYDROCHLORIDE
     Indication: PRODUCT USED FOR UNKNOWN INDICATION
     Route: 065
  5. ASPRIN [Concomitant]
     Active Substance: ASPIRIN
     Indication: PRODUCT USED FOR UNKNOWN INDICATION
     Route: 065
  6. MACROBID [CLARITHROMYCIN] [Concomitant]
     Active Substance: CLARITHROMYCIN
     Indication: PRODUCT USED FOR UNKNOWN INDICATION
     Dosage: UNK
     Route: 065

REACTIONS (19)
  - Blood glucose increased [Recovering/Resolving]
  - Renal mass [Unknown]
  - Product dose omission issue [Unknown]
  - Cellulitis [Unknown]
  - Viral infection [Recovering/Resolving]
  - Vomiting [Unknown]
  - Ear infection [Recovering/Resolving]
  - Pneumonia [Recovered/Resolved]
  - Nausea [Unknown]
  - Sinusitis [Unknown]
  - Urinary tract infection bacterial [Recovered/Resolved]
  - Dizziness [Unknown]
  - Fall [Unknown]
  - Kidney infection [Recovering/Resolving]
  - Treatment noncompliance [Recovered/Resolved]
  - Rash [Unknown]
  - Hip fracture [Recovering/Resolving]
  - Cystitis [Unknown]
  - Arthralgia [Not Recovered/Not Resolved]

NARRATIVE: CASE EVENT DATE: 20170316
